FAERS Safety Report 11906600 (Version 1)
Quarter: 2016Q1

REPORT INFORMATION
  Report Type: Spontaneous
  Country: US (occurrence: None)
  Receive Date: 20160108
  Receipt Date: 20160108
  Transmission Date: 20160526
  Serious: Yes (Other)
  Sender: FDA-Public Use
  Company Number: None

PATIENT
  Age: 44 Year
  Sex: Female
  Weight: 68.04 kg

DRUGS (2)
  1. PROAIR RESCUE INHALER [Concomitant]
  2. ADVAIR DISKUS [Suspect]
     Active Substance: FLUTICASONE PROPIONATE\SALMETEROL XINAFOATE
     Indication: BRONCHITIS
     Route: 048
     Dates: start: 20151214, end: 20151214

REACTIONS (1)
  - Choking [None]

NARRATIVE: CASE EVENT DATE: 20151214
